FAERS Safety Report 5122128-3 (Version None)
Quarter: 2006Q4

REPORT INFORMATION
  Report Type: 
  Country: None (occurrence: None)
  Receive Date: 20061006
  Receipt Date: 20060824
  Transmission Date: 20070319
  Serious: Yes (Hospitalization)
  Sender: FDA-Public Use
  Company Number: JP-BOEHRINGER INGELHEIM PHARMACEUTICALS, INC.-2006-BP-09893NB

PATIENT
  Sex: Male

DRUGS (3)
  1. MICARDIS [Suspect]
     Indication: HYPERTENSION
     Route: 048
     Dates: start: 20060525, end: 20060824
  2. MARZULENE-S (SODIUM AZULENE SULFONATE_L-GLUTAMINE) [Concomitant]
     Indication: GASTRIC ULCER
     Route: 048
  3. HOKUNALIN: TAPE [Concomitant]
     Indication: CHRONIC OBSTRUCTIVE PULMONARY DISEASE
     Route: 062
     Dates: start: 20050207

REACTIONS (1)
  - PLATELET COUNT DECREASED [None]
